FAERS Safety Report 15407733 (Version 1)
Quarter: 2018Q3

REPORT INFORMATION
  Report Type: Spontaneous
  Country: US (occurrence: US)
  Receive Date: 20180920
  Receipt Date: 20180920
  Transmission Date: 20181010
  Serious: No
  Sender: FDA-Public Use
  Company Number: US-BAUSCH-BL-2018-014279

PATIENT
  Sex: Male

DRUGS (1)
  1. FLUOROURACIL. [Suspect]
     Active Substance: FLUOROURACIL
     Indication: PRODUCT USED FOR UNKNOWN INDICATION
     Dosage: FOR 2 WEEKS NOW
     Route: 061
     Dates: start: 2018

REACTIONS (3)
  - Skin burning sensation [Unknown]
  - Erythema [Unknown]
  - Skin disorder [Unknown]

NARRATIVE: CASE EVENT DATE: 201805
